FAERS Safety Report 17442098 (Version 1)
Quarter: 2020Q1

REPORT INFORMATION
  Report Type: Spontaneous
  Country: US (occurrence: US)
  Receive Date: 20200220
  Receipt Date: 20200220
  Transmission Date: 20200409
  Serious: No
  Sender: FDA-Public Use
  Company Number: US-TAKEDA-2020TUS010056

PATIENT
  Sex: Female

DRUGS (1)
  1. COLCRYS [Suspect]
     Active Substance: COLCHICINE
     Indication: CHEST PAIN
     Dosage: 0.6 MILLIGRAM, QD
     Route: 065
     Dates: start: 20200213

REACTIONS (2)
  - No adverse event [Unknown]
  - Off label use [Unknown]
